FAERS Safety Report 8912465 (Version 1)
Quarter: 2012Q4

REPORT INFORMATION
  Report Type: 
  Country: DE (occurrence: DE)
  Receive Date: 20121116
  Receipt Date: 20121116
  Transmission Date: 20130627
  Serious: Yes (Life-Threatening, Other)
  Sender: FDA-Public Use
  Company Number: DE-ROCHE-1152972

PATIENT
  Age: 41 Year
  Sex: Female

DRUGS (4)
  1. BEVACIZUMAB [Suspect]
     Indication: RECTAL CANCER METASTATIC
     Route: 042
  2. FOLINIC ACID [Concomitant]
     Indication: RECTAL CANCER METASTATIC
     Route: 042
  3. 5-FLUOROURACIL [Concomitant]
     Indication: RECTAL CANCER METASTATIC
     Route: 042
  4. IRINOTECAN [Concomitant]
     Indication: RECTAL CANCER METASTATIC
     Route: 042

REACTIONS (2)
  - Superior vena cava syndrome [Recovered/Resolved]
  - Thrombosis in device [Recovered/Resolved]
